FAERS Safety Report 11129811 (Version 1)
Quarter: 2015Q2

REPORT INFORMATION
  Report Type: Report from Study
  Country: JP (occurrence: JP)
  Receive Date: 20150521
  Receipt Date: 20150521
  Transmission Date: 20150821
  Serious: Yes (Death, Hospitalization)
  Sender: FDA-Public Use
  Company Number: JP-OTSUKA-JP-2015-11448

PATIENT

DRUGS (19)
  1. TOLVAPTAN [Suspect]
     Active Substance: TOLVAPTAN
     Indication: OEDEMA DUE TO CARDIAC DISEASE
     Dosage: 7.5 MG, QD
     Route: 048
     Dates: start: 20140410, end: 20140602
  2. FUROSEMIDE. [Concomitant]
     Active Substance: FUROSEMIDE
     Dosage: 40 MG/DAY
     Route: 042
     Dates: start: 20140411, end: 20140414
  3. HANP [Concomitant]
     Active Substance: CARPERITIDE
     Indication: CARDIAC FAILURE
     Dosage: 1 MG/DAY
     Route: 041
     Dates: start: 20140410, end: 20140527
  4. DOBUTAMINE [Concomitant]
     Active Substance: DOBUTAMINE\DOBUTAMINE HYDROCHLORIDE
     Dosage: 9 MG/DAY
     Route: 041
     Dates: start: 20140529, end: 20140602
  5. FLUITRAN [Concomitant]
     Active Substance: TRICHLORMETHIAZIDE
     Indication: CARDIAC FAILURE
     Dosage: 1 MG/DAY
     Route: 048
     Dates: start: 20140419, end: 20140524
  6. GASTER [Concomitant]
     Active Substance: FAMOTIDINE
     Indication: PRODUCT USED FOR UNKNOWN INDICATION
     Dosage: 20 MG/DAY
     Route: 048
     Dates: end: 20140524
  7. IRBETAN [Concomitant]
     Active Substance: IRBESARTAN
     Indication: PRODUCT USED FOR UNKNOWN INDICATION
     Dosage: 100 MG/DAY
     Route: 048
     Dates: end: 20140524
  8. FUROSEMIDE. [Concomitant]
     Active Substance: FUROSEMIDE
     Dosage: 20 MG/DAY
     Route: 042
     Dates: start: 20140529, end: 20140602
  9. SELARA [Concomitant]
     Active Substance: EPLERENONE
     Indication: PRODUCT USED FOR UNKNOWN INDICATION
     Dosage: 50 MG/DAY
     Route: 048
     Dates: start: 20140417, end: 20140524
  10. BAYASPIRIN [Concomitant]
     Active Substance: ASPIRIN
     Indication: PRODUCT USED FOR UNKNOWN INDICATION
     Dosage: 100 MG/DAY
     Route: 048
     Dates: end: 20140512
  11. FUROSEMIDE. [Concomitant]
     Active Substance: FUROSEMIDE
     Dosage: 20 MG/DAY
     Route: 042
     Dates: start: 20140415, end: 20140428
  12. MILRILA [Concomitant]
     Active Substance: MILRINONE
     Indication: CARDIAC FAILURE
     Dosage: 0.3 MG/DAY
     Route: 042
     Dates: start: 20140417, end: 20140429
  13. DIART [Concomitant]
     Active Substance: AZOSEMIDE
     Indication: CARDIAC FAILURE
     Dosage: 60 MG/DAY
     Route: 048
     Dates: start: 20140429, end: 20140529
  14. DOBUTAMINE [Concomitant]
     Active Substance: DOBUTAMINE\DOBUTAMINE HYDROCHLORIDE
     Indication: CARDIAC FAILURE
     Dosage: 4 MG/DAY
     Route: 041
     Dates: start: 20140420, end: 20140427
  15. TRAZENTA [Concomitant]
     Active Substance: LINAGLIPTIN
     Indication: PRODUCT USED FOR UNKNOWN INDICATION
     Dosage: 5 MG/DAY
     Route: 048
     Dates: start: 20140429, end: 20140524
  16. ONOACT [Concomitant]
     Active Substance: LANDIOLOL HYDROCHLORIDE
     Indication: PRODUCT USED FOR UNKNOWN INDICATION
     Dosage: 3 MG/DAY
     Route: 041
     Dates: start: 20140504, end: 20140507
  17. AMARYL [Concomitant]
     Active Substance: GLIMEPIRIDE
     Indication: PRODUCT USED FOR UNKNOWN INDICATION
     Dosage: 1 MG/DAY
     Route: 048
     Dates: start: 20140425, end: 20140524
  18. FUROSEMIDE. [Concomitant]
     Active Substance: FUROSEMIDE
     Indication: CARDIAC FAILURE
     Dosage: 20 MG/DAY
     Route: 042
     Dates: end: 20140410
  19. ELIQUIS [Concomitant]
     Active Substance: APIXABAN
     Indication: PRODUCT USED FOR UNKNOWN INDICATION
     Dosage: 10 MG/DAY
     Route: 048
     Dates: start: 20140504, end: 20140601

REACTIONS (3)
  - Delirium [Not Recovered/Not Resolved]
  - Sepsis [Fatal]
  - Urinary tract infection [Recovering/Resolving]

NARRATIVE: CASE EVENT DATE: 20140506
